FAERS Safety Report 5865372-X (Version None)
Quarter: 2008Q3

REPORT INFORMATION
  Report Type: 
  Country: None (occurrence: None)
  Receive Date: 20080829
  Receipt Date: 20080805
  Transmission Date: 20090109
  Serious: No
  Sender: FDA-Public Use
  Company Number: US-ABBOTT-08P-163-0465530-00

PATIENT
  Sex: Female

DRUGS (3)
  1. SIMCOR [Suspect]
     Indication: DRUG USE FOR UNKNOWN INDICATION
     Dosage: 500/20 MG AT BEDTIME
     Route: 048
     Dates: start: 20080717, end: 20080804
  2. VERAPAMIL [Concomitant]
     Indication: HYPERTENSION
     Route: 048
  3. QUINAPRIL HCL [Concomitant]
     Indication: HYPERTENSION
     Route: 048

REACTIONS (3)
  - DIZZINESS [None]
  - DYSPNOEA [None]
  - HEADACHE [None]
